FAERS Safety Report 23111650 (Version 1)
Quarter: 2023Q4

REPORT INFORMATION
  Report Type: Spontaneous
  Country: US (occurrence: None)
  Receive Date: 20231025
  Receipt Date: 20231025
  Transmission Date: 20240109
  Serious: Yes (Hospitalization)
  Sender: FDA-Public Use
  Company Number: None

PATIENT
  Sex: Male

DRUGS (11)
  1. TACROLIMUS [Suspect]
     Active Substance: TACROLIMUS
     Indication: Renal transplant
     Route: 048
     Dates: start: 20200620
  2. ASPIRIN LOW TAB 81MG EC [Concomitant]
  3. FUROSEMIDE TAB 20MG [Concomitant]
  4. GLIPIZIDE ER TAB 10MG [Concomitant]
  5. JANUVIA TAB 100MG [Concomitant]
  6. LOPERAMIDE CAP 2MG [Concomitant]
  7. METFORMIN TAB 1000MG [Concomitant]
  8. MYCOPHENOLAT TAB 500MG [Concomitant]
  9. MYCOPENOLATE 500MG TAB [Concomitant]
  10. PREDNISONE 5 MG TAB [Concomitant]
  11. PREDNISONE TAB 5MG [Concomitant]

REACTIONS (2)
  - Pulmonary thrombosis [None]
  - Dyspnoea [None]
